FAERS Safety Report 18428135 (Version 1)
Quarter: 2020Q4

REPORT INFORMATION
  Report Type: Spontaneous
  Country: US (occurrence: US)
  Receive Date: 20201026
  Receipt Date: 20201026
  Transmission Date: 20210114
  Serious: No
  Sender: FDA-Public Use
  Company Number: US-BIOHAVEN PHARMACEUTICALS-2020BHV00093

PATIENT
  Sex: Female

DRUGS (1)
  1. NURTEC ODT [Suspect]
     Active Substance: RIMEGEPANT SULFATE
     Indication: MIGRAINE WITH AURA
     Dosage: 75 MG AT ONSET
     Route: 048
     Dates: start: 202005

REACTIONS (3)
  - Drug ineffective [Unknown]
  - Phonophobia [Unknown]
  - Speech disorder [Unknown]

NARRATIVE: CASE EVENT DATE: 202005
